FAERS Safety Report 18625075 (Version 2)
Quarter: 2020Q4

REPORT INFORMATION
  Report Type: Report from Study
  Country: GB (occurrence: GB)
  Receive Date: 20201217
  Receipt Date: 20201223
  Transmission Date: 20210114
  Serious: Yes (Hospitalization, Other)
  Sender: FDA-Public Use
  Company Number: GB-SAMSUNG BIOEPIS-SB-2020-37166

PATIENT
  Age: 70 Year
  Sex: Female

DRUGS (1)
  1. IMRALDI [Suspect]
     Active Substance: ADALIMUMAB
     Indication: RHEUMATOID ARTHRITIS
     Route: 058
     Dates: start: 20200916

REACTIONS (5)
  - Immunosuppression [Unknown]
  - Peripheral swelling [Unknown]
  - Swelling [Unknown]
  - Lower respiratory tract infection [Unknown]
  - Hypersensitivity [Unknown]
